FAERS Safety Report 4502289-7 (Version None)
Quarter: 2004Q4

REPORT INFORMATION
  Report Type: 
  Country: None (occurrence: None)
  Receive Date: 20041116
  Receipt Date: 20001201
  Transmission Date: 20050328
  Serious: Yes (Hospitalization)
  Sender: FDA-Public Use
  Company Number: US-GLAXOSMITHKLINE-A0133457A

PATIENT
  Age: 63 Year
  Sex: Female

DRUGS (1)
  1. LOTRONEX [Suspect]
     Indication: DIVERTICULUM
     Dosage: 1MG UNKNOWN
     Route: 048
     Dates: start: 20000404

REACTIONS (9)
  - ABDOMINAL PAIN [None]
  - ABDOMINAL PAIN LOWER [None]
  - CELLULITIS [None]
  - COLECTOMY [None]
  - CONSTIPATION [None]
  - DIVERTICULITIS [None]
  - FAECALOMA [None]
  - MASS [None]
  - NAUSEA [None]
